FAERS Safety Report 18441020 (Version 1)
Quarter: 2020Q4

REPORT INFORMATION
  Report Type: Spontaneous
  Country: US (occurrence: US)
  Receive Date: 20201029
  Receipt Date: 20201029
  Transmission Date: 20210114
  Serious: Yes (Other)
  Sender: FDA-Public Use
  Company Number: US-REGENERON PHARMACEUTICALS, INC.-2020-83310

PATIENT

DRUGS (2)
  1. EYLEA [Suspect]
     Active Substance: AFLIBERCEPT
     Indication: NEOVASCULAR AGE-RELATED MACULAR DEGENERATION
     Dosage: 2MG, AS NECESSARY, RIGHT EYE
     Route: 031
     Dates: start: 20200805, end: 20200805
  2. EYLEA [Suspect]
     Active Substance: AFLIBERCEPT
     Dosage: 2MG, AS NECESSARY, RIGHT EYE
     Route: 031
     Dates: start: 20200908, end: 20200908

REACTIONS (7)
  - Vision blurred [Unknown]
  - Cataract [Unknown]
  - Retinal haemorrhage [Unknown]
  - Dyschromatopsia [Unknown]
  - Visual impairment [Unknown]
  - Drug ineffective [Unknown]
  - Vitreous floaters [Unknown]

NARRATIVE: CASE EVENT DATE: 20200805
